FAERS Safety Report 7048396-9 (Version None)
Quarter: 2010Q4

REPORT INFORMATION
  Report Type: 
  Country: None (occurrence: None)
  Receive Date: 20101014
  Receipt Date: 20101014
  Transmission Date: 20110411
  Serious: Yes (Hospitalization)
  Sender: FDA-Public Use
  Company Number: None

PATIENT
  Sex: Male
  Weight: 87.0906 kg

DRUGS (2)
  1. FERAHEME [Suspect]
     Indication: DEFICIENCY ANAEMIA
     Dosage: 510 MG WEEKLY IV BOLUS X 2 DOSES
     Route: 040
     Dates: start: 20100623, end: 20100630
  2. FERAHEME [Suspect]
     Indication: DEFICIENCY ANAEMIA
     Dosage: 510 MG WEEKLY IV BOLUS X 2 DOSES
     Route: 040
     Dates: start: 20101012, end: 20101025

REACTIONS (4)
  - DROOLING [None]
  - EYE ROLLING [None]
  - HYPOTENSION [None]
  - UNRESPONSIVE TO STIMULI [None]
